FAERS Safety Report 17364514 (Version 2)
Quarter: 2020Q1

REPORT INFORMATION
  Report Type: Spontaneous
  Country: FR (occurrence: FR)
  Receive Date: 20200204
  Receipt Date: 20200217
  Transmission Date: 20200409
  Serious: Yes (Other)
  Sender: FDA-Public Use
  Company Number: FR-B.I. PHARMACEUTICALS,INC./RIDGEFIELD-2020-12-005110

PATIENT
  Age: 68 Year
  Sex: Male

DRUGS (2)
  1. BRICANYL [Suspect]
     Active Substance: TERBUTALINE SULFATE
     Indication: RESPIRATORY DISTRESS
     Dosage: INCONNUE
     Route: 055
     Dates: start: 20191204, end: 20191205
  2. ATROVENT [Suspect]
     Active Substance: IPRATROPIUM BROMIDE
     Indication: RESPIRATORY DISTRESS
     Dosage: ; IN TOTAL
     Route: 055
     Dates: start: 20191204, end: 20191204

REACTIONS (1)
  - Atrial fibrillation [Recovered/Resolved]

NARRATIVE: CASE EVENT DATE: 20191204
